FAERS Safety Report 14763833 (Version 1)
Quarter: 2018Q2

REPORT INFORMATION
  Report Type: Spontaneous
  Country: US (occurrence: US)
  Receive Date: 20180416
  Receipt Date: 20180416
  Transmission Date: 20180711
  Serious: No
  Sender: FDA-Public Use
  Company Number: US-SAREPTA THERAPEUTICS, INC-SRP-000007-2018

PATIENT
  Age: 21 Year
  Sex: Male
  Weight: 52.6 kg

DRUGS (11)
  1. EXONDYS 51 [Suspect]
     Active Substance: ETEPLIRSEN
     Indication: DUCHENNE MUSCULAR DYSTROPHY
     Dosage: 1550 MG, OVER 45 MINUTES, WEEKLY
     Route: 042
     Dates: start: 20171016
  2. ADVAIR HFA 45-21 MCG/ACT [Concomitant]
     Indication: PRODUCT USED FOR UNKNOWN INDICATION
     Dosage: 2 DF, BID
     Route: 055
  3. PROVENTIL [Concomitant]
     Active Substance: ALBUTEROL
     Indication: WHEEZING
     Dosage: 2.5 MG, EVERY 6 HOURS (AS NEEDED)
     Route: 055
  4. VITAMIN D [Concomitant]
     Active Substance: CHOLECALCIFEROL
     Indication: PRODUCT USED FOR UNKNOWN INDICATION
     Dosage: 1000 UT, UNK
     Route: 048
  5. DELTASONE [Concomitant]
     Active Substance: PREDNISONE
     Indication: PRODUCT USED FOR UNKNOWN INDICATION
     Dosage: 1 DF (TOTAL OF 12.5 DAILY)
     Route: 048
  6. ATROVENT [Concomitant]
     Active Substance: IPRATROPIUM BROMIDE
     Indication: PRODUCT USED FOR UNKNOWN INDICATION
     Dosage: 1 DF, QID (SEPERATE EACH DOSE BY 6 TO 8 HOURS)
     Route: 050
  7. PRINIVIL, ZESTRIL [Concomitant]
     Indication: PRODUCT USED FOR UNKNOWN INDICATION
     Dosage: 1 DF, UNK
     Route: 048
  8. DELTASONE [Concomitant]
     Active Substance: PREDNISONE
     Indication: PRODUCT USED FOR UNKNOWN INDICATION
     Dosage: 1 DF  (TOTAL OF 12.5 MG DAILY; TAKE WITH 2.5 MG)
     Route: 048
  9. OSCAL [Concomitant]
     Active Substance: CALCIUM CARBONATE
     Indication: PRODUCT USED FOR UNKNOWN INDICATION
     Dosage: 600 MG, UNK
     Route: 048
  10. ZANTAC [Concomitant]
     Active Substance: RANITIDINE HYDROCHLORIDE
     Indication: PRODUCT USED FOR UNKNOWN INDICATION
     Dosage: 150 MG, UNK
     Route: 048
  11. SODIUM CHLORIDE. [Concomitant]
     Active Substance: SODIUM CHLORIDE
     Indication: PRODUCT USED FOR UNKNOWN INDICATION
     Dosage: UNK, PRN
     Route: 050

REACTIONS (1)
  - Influenza [Recovered/Resolved]

NARRATIVE: CASE EVENT DATE: 20180111
